FAERS Safety Report 9496599 (Version 1)
Quarter: 2013Q3

REPORT INFORMATION
  Report Type: Spontaneous
  Country: JP (occurrence: None)
  Receive Date: 20130828
  Receipt Date: 20130828
  Transmission Date: 20140515
  Serious: Yes (Hospitalization)
  Sender: FDA-Public Use
  Company Number: THQ2013A06289

PATIENT
  Age: 67 Year
  Sex: Male

DRUGS (2)
  1. TAKEPRON (LANSOPRAZOLE) [Suspect]
     Dates: end: 20130813
  2. SEIBULE [Suspect]
     Route: 048
     Dates: start: 20130301, end: 20130813

REACTIONS (3)
  - Diarrhoea [None]
  - Dehydration [None]
  - Acute prerenal failure [None]
